FAERS Safety Report 6070447-9 (Version None)
Quarter: 2009Q1

REPORT INFORMATION
  Report Type: 
  Country: None (occurrence: None)
  Receive Date: 20090204
  Receipt Date: 20090122
  Transmission Date: 20090719
  Serious: Yes (Hospitalization)
  Sender: FDA-Public Use
  Company Number: 1-17364694

PATIENT
  Age: 48 Year
  Sex: Female

DRUGS (2)
  1. CARBAMAZEPINE [Suspect]
     Indication: EPILEPSY
     Dosage: 750 MG PER DAY, ORAL
     Route: 048
  2. PREGABALIN [Suspect]
     Indication: EPILEPSY
     Dosage: 150 MG PER DAY, ORAL
     Route: 048

REACTIONS (2)
  - CENTRAL NERVOUS SYSTEM LESION [None]
  - CYTOTOXIC OEDEMA [None]
